FAERS Safety Report 19906452 (Version 2)
Quarter: 2021Q4

REPORT INFORMATION
  Report Type: Spontaneous
  Country: CH (occurrence: CH)
  Receive Date: 20210930
  Receipt Date: 20211007
  Transmission Date: 20220303
  Serious: Yes (Other)
  Sender: FDA-Public Use
  Company Number: CH-UCBSA-2021046435

PATIENT
  Sex: Male

DRUGS (16)
  1. BRIVIACT [Suspect]
     Active Substance: BRIVARACETAM
     Indication: Epilepsy
     Dosage: 200MG/DAY
     Dates: start: 202102, end: 202102
  2. BRIVIACT [Suspect]
     Active Substance: BRIVARACETAM
     Dosage: 300MG/DAY
     Dates: start: 202102, end: 202109
  3. BRIVIACT [Suspect]
     Active Substance: BRIVARACETAM
     Dosage: 400MG/DAY
     Dates: start: 202109
  4. BRIVIACT [Suspect]
     Active Substance: BRIVARACETAM
     Dosage: 150 MILLIGRAM, 2X/DAY (BID)
     Dates: start: 2021
  5. LAMOTRIGINE [Concomitant]
     Active Substance: LAMOTRIGINE
     Indication: Epilepsy
     Dosage: 200MG/DAY
     Dates: start: 201903
  6. LAMOTRIGINE [Concomitant]
     Active Substance: LAMOTRIGINE
     Dosage: 300 MG/DAY
     Dates: start: 201905
  7. LAMOTRIGINE [Concomitant]
     Active Substance: LAMOTRIGINE
     Dosage: 350 MG/DAY
     Dates: start: 202005
  8. LAMOTRIGINE [Concomitant]
     Active Substance: LAMOTRIGINE
     Dosage: 400 MG/DAY
     Dates: start: 202009
  9. LAMOTRIGINE [Concomitant]
     Active Substance: LAMOTRIGINE
     Dosage: 500 MG/DAY
     Dates: start: 202010
  10. LAMOTRIGINE [Concomitant]
     Active Substance: LAMOTRIGINE
     Dosage: 600 MG/DAY
     Dates: start: 202012
  11. LAMOTRIGINE [Concomitant]
     Active Substance: LAMOTRIGINE
     Dosage: 400 MG/DAY
     Dates: start: 202012
  12. LAMOTRIGINE [Concomitant]
     Active Substance: LAMOTRIGINE
     Dosage: 450 MG/DAY
     Dates: start: 202107
  13. LAMOTRIGINE [Concomitant]
     Active Substance: LAMOTRIGINE
     Dosage: 400 MG/DAY
     Dates: start: 202109
  14. LACOSAMIDE [Concomitant]
     Active Substance: LACOSAMIDE
     Indication: Epilepsy
     Dosage: 100 MILLIGRAM, ONCE DAILY (QD)
     Dates: start: 202005
  15. LACOSAMIDE [Concomitant]
     Active Substance: LACOSAMIDE
     Dosage: 200 MILLIGRAM, ONCE DAILY (QD)
     Dates: start: 202006
  16. LACOSAMIDE [Concomitant]
     Active Substance: LACOSAMIDE
     Dosage: 400 MILLIGRAM, ONCE DAILY (QD)
     Dates: start: 202008

REACTIONS (4)
  - Seizure [Recovering/Resolving]
  - Dizziness [Recovering/Resolving]
  - Overdose [Unknown]
  - Off label use [Unknown]

NARRATIVE: CASE EVENT DATE: 20210101
